FAERS Safety Report 5043212-9 (Version None)
Quarter: 2006Q2

REPORT INFORMATION
  Report Type: 
  Country: None (occurrence: None)
  Receive Date: 20060629
  Receipt Date: 20060614
  Transmission Date: 20061013
  Serious: Yes (Hospitalization)
  Sender: FDA-Public Use
  Company Number: DE-2006-016056

PATIENT
  Sex: Male

DRUGS (2)
  1. BETASERON [Suspect]
     Dosage: SEE IMAGE
     Route: 058
     Dates: end: 20060601
  2. BETASERON [Suspect]
     Dosage: SEE IMAGE
     Route: 058
     Dates: start: 20060601

REACTIONS (1)
  - NECROSIS [None]
